FAERS Safety Report 9652546 (Version 1)
Quarter: 2013Q4

REPORT INFORMATION
  Report Type: Spontaneous
  Country: US (occurrence: US)
  Receive Date: 20131029
  Receipt Date: 20131029
  Transmission Date: 20140711
  Serious: No
  Sender: FDA-Public Use
  Company Number: US-JNJFOC-20131011928

PATIENT
  Age: 46 Year
  Sex: Female
  Weight: 79.38 kg

DRUGS (4)
  1. DURAGESIC [Suspect]
     Indication: BACK INJURY
     Route: 062
  2. DURAGESIC [Suspect]
     Indication: BACK INJURY
     Route: 062
     Dates: end: 201310
  3. DURAGESIC [Suspect]
     Indication: BACK INJURY
     Route: 062
     Dates: start: 201310
  4. DURAGESIC [Suspect]
     Indication: BACK INJURY
     Route: 062

REACTIONS (7)
  - Wrong technique in drug usage process [Not Recovered/Not Resolved]
  - Drug effect decreased [Recovered/Resolved]
  - Wrong technique in drug usage process [Not Recovered/Not Resolved]
  - Drug tolerance [Recovered/Resolved]
  - Drug dose omission [Not Recovered/Not Resolved]
  - Product quality issue [Unknown]
  - Wrong technique in drug usage process [Not Recovered/Not Resolved]
